FAERS Safety Report 17990876 (Version 7)
Quarter: 2021Q2

REPORT INFORMATION
  Report Type: Spontaneous
  Country: GB (occurrence: GB)
  Receive Date: 20200707
  Receipt Date: 20210416
  Transmission Date: 20210717
  Serious: Yes (Hospitalization, Other)
  Sender: FDA-Public Use
  Company Number: GB-MYLANLABS-2020M1060756

PATIENT
  Sex: Male

DRUGS (8)
  1. EFAVIRENZ. [Suspect]
     Active Substance: EFAVIRENZ
     Dosage: 600 MILLIGRAM, QD
  2. ABACAVIR. [Suspect]
     Active Substance: ABACAVIR
     Dosage: 300 MILLIGRAM, QD
  3. ZEFFIX [Suspect]
     Active Substance: LAMIVUDINE
     Dosage: 100 MILLIGRAM, QD
  4. ZEFFIX [Suspect]
     Active Substance: LAMIVUDINE
     Dosage: 300 MILLIGRAM, QD
     Route: 065
  5. ABACAVIR. [Suspect]
     Active Substance: ABACAVIR
     Indication: PRODUCT USED FOR UNKNOWN INDICATION
     Dosage: UNK UNK, QD (STRENGTH 300, OD)
  6. ZEFFIX [Suspect]
     Active Substance: LAMIVUDINE
     Indication: PRODUCT USED FOR UNKNOWN INDICATION
     Dosage: UNK UNK, QD (STRENGTH 100 OD)
  7. ABACAVIR. [Suspect]
     Active Substance: ABACAVIR
     Dosage: 600 MILLIGRAM, QD
  8. EFAVIRENZ. [Suspect]
     Active Substance: EFAVIRENZ
     Indication: PRODUCT USED FOR UNKNOWN INDICATION
     Dosage: UNK UNK, QD (STRENGTH 600)

REACTIONS (6)
  - Lung neoplasm malignant [Unknown]
  - Malaise [Unknown]
  - Life expectancy shortened [Unknown]
  - Lung cancer metastatic [Unknown]
  - Feeling abnormal [Unknown]
  - Metastases to central nervous system [Unknown]
